FAERS Safety Report 11180748 (Version 3)
Quarter: 2015Q3

REPORT INFORMATION
  Report Type: Spontaneous
  Country: JP (occurrence: None)
  Receive Date: 20150609
  Receipt Date: 20150731
  Transmission Date: 20151125
  Serious: Yes (Death, Hospitalization, Other)
  Sender: FDA-Public Use
  Company Number: DEP_02995_2015

PATIENT
  Age: 55 Year
  Sex: Male
  Weight: 56.1 kg

DRUGS (3)
  1. TAPENTA [Suspect]
     Active Substance: TAPENTADOL HYDROCHLORIDE
     Indication: CANCER PAIN
     Route: 048
     Dates: start: 20150401, end: 20150429
  2. FENTOS [Suspect]
     Active Substance: FENTANYL
     Indication: CANCER PAIN
     Route: 062
     Dates: start: 20150430, end: 20150508
  3. FENTANYL CITRATE. [Suspect]
     Active Substance: FENTANYL CITRATE
     Indication: CANCER PAIN
     Dosage: 400 UG QD,
     Route: 060
     Dates: start: 20150430, end: 20150508

REACTIONS (4)
  - Somnolence [None]
  - Condition aggravated [None]
  - Oesophageal cancer metastatic [None]
  - Respiratory depression [None]

NARRATIVE: CASE EVENT DATE: 20150325
